FAERS Safety Report 4989109-1 (Version None)
Quarter: 2006Q2

REPORT INFORMATION
  Report Type: 
  Country: None (occurrence: None)
  Receive Date: 20060425
  Receipt Date: 20060412
  Transmission Date: 20061013
  Serious: Yes (Other)
  Sender: FDA-Public Use
  Company Number: 8016273

PATIENT
  Sex: Male

DRUGS (2)
  1. KEPPRA [Suspect]
     Indication: PARTIAL SEIZURES
  2. COUMADIN [Concomitant]

REACTIONS (2)
  - ANAEMIA [None]
  - PLATELET COUNT DECREASED [None]
